FAERS Safety Report 22261982 (Version 1)
Quarter: 2023Q2

REPORT INFORMATION
  Report Type: Spontaneous
  Country: US (occurrence: US)
  Receive Date: 20230428
  Receipt Date: 20230428
  Transmission Date: 20230722
  Serious: Yes (Other)
  Sender: FDA-Public Use
  Company Number: US-BEH-2023157963

PATIENT
  Sex: Male

DRUGS (1)
  1. HIZENTRA [Suspect]
     Active Substance: HUMAN IMMUNOGLOBULIN G
     Indication: Immunodeficiency common variable
     Dosage: 15 MILLILITER, QW
     Route: 065
     Dates: start: 202204

REACTIONS (6)
  - Shoulder operation [Unknown]
  - Disability [Unknown]
  - No adverse event [Unknown]
  - Product use complaint [Unknown]
  - Infusion site swelling [Unknown]
  - Infusion site mass [Unknown]

NARRATIVE: CASE EVENT DATE: 20230101
